FAERS Safety Report 25223389 (Version 1)
Quarter: 2025Q2

REPORT INFORMATION
  Report Type: Spontaneous
  Country: US (occurrence: US)
  Receive Date: 20250422
  Receipt Date: 20250422
  Transmission Date: 20250717
  Serious: Yes (Other)
  Sender: COOPERSURGICAL
  Company Number: US-COOPERSURGICAL, INC.-2025CPS002992

PATIENT
  Age: 37 Year
  Sex: Female
  Weight: 88.435 kg

DRUGS (1)
  1. PARAGARD T 380A [Suspect]
     Active Substance: COPPER
     Indication: Contraception
     Route: 015
     Dates: start: 20090721

REACTIONS (23)
  - Reproductive complication associated with device [Unknown]
  - Infertility female [Unknown]
  - Device breakage [Recovered/Resolved]
  - Foreign body in reproductive tract [Recovered/Resolved]
  - Complication of device removal [Recovered/Resolved]
  - Haemorrhage [Unknown]
  - Headache [Unknown]
  - Blood iron decreased [Unknown]
  - Inflammation [Not Recovered/Not Resolved]
  - Emotional distress [Unknown]
  - Depression [Unknown]
  - Anxiety [Unknown]
  - Weight increased [Unknown]
  - Pyrexia [Unknown]
  - Abdominal pain [Unknown]
  - Infection [Unknown]
  - Abnormal uterine bleeding [Unknown]
  - Pain [Unknown]
  - Nausea [Unknown]
  - Vaginal haemorrhage [Unknown]
  - Vaginal infection [Recovered/Resolved]
  - Pelvic pain [Not Recovered/Not Resolved]
  - Menstruation irregular [Unknown]

NARRATIVE: CASE EVENT DATE: 20180601
